FAERS Safety Report 9214069 (Version 4)
Quarter: 2013Q3

REPORT INFORMATION
  Report Type: Spontaneous
  Country: US (occurrence: US)
  Receive Date: 20130405
  Receipt Date: 20130710
  Transmission Date: 20140515
  Serious: No
  Sender: FDA-Public Use
  Company Number: US-PFIZER INC-2013107638

PATIENT
  Age: 60 Year
  Sex: Female
  Weight: 61.22 kg

DRUGS (17)
  1. LYRICA [Suspect]
     Indication: FIBROMYALGIA
     Dosage: 150 MG, 2X/DAY
     Route: 048
  2. LYRICA [Suspect]
     Dosage: 150 MG, 2X/DAY
     Route: 048
  3. OMEPRAZOLE [Concomitant]
     Indication: GASTROOESOPHAGEAL REFLUX DISEASE
     Dosage: UNK
  4. IBUPROFEN [Concomitant]
     Dosage: UNK, AS NEEDED
  5. IBUPROFEN [Concomitant]
     Dosage: 600 MG, UNK
  6. CLONAZEPAM [Concomitant]
     Dosage: UNK
  7. TRAMADOL [Concomitant]
     Dosage: UNK
  8. RANITIDINE [Concomitant]
     Dosage: UNK
  9. LORATADINE [Concomitant]
     Dosage: UNK
  10. VITAMIN D [Concomitant]
     Dosage: UNK
  11. CYMBALTA [Concomitant]
     Dosage: UNK
  12. PRAZOSIN [Concomitant]
     Dosage: UNK
  13. LEVOTHYROXINE [Concomitant]
     Indication: THYROID FUNCTION TEST ABNORMAL
     Dosage: UNK
  14. METHOCARBAMOL [Concomitant]
     Dosage: UNK
  15. TRAZODONE [Concomitant]
     Dosage: UNK
  16. PROMETHAZINE [Concomitant]
     Dosage: UNK
  17. LITHIUM [Concomitant]
     Dosage: UNK

REACTIONS (5)
  - Intentional drug misuse [Unknown]
  - Malaise [Unknown]
  - Withdrawal syndrome [Unknown]
  - Visual acuity reduced [Unknown]
  - Vision blurred [Unknown]
